FAERS Safety Report 21977966 (Version 1)
Quarter: 2023Q1

REPORT INFORMATION
  Report Type: Spontaneous
  Country: CA (occurrence: CA)
  Receive Date: 20230210
  Receipt Date: 20230210
  Transmission Date: 20230417
  Serious: Yes (Death, Life-Threatening, Other)
  Sender: FDA-Public Use
  Company Number: CA-PFIZER INC-202300059374

PATIENT
  Age: 60 Year
  Sex: Male

DRUGS (6)
  1. HEPARIN SODIUM [Suspect]
     Active Substance: HEPARIN SODIUM
     Indication: Jugular vein thrombosis
     Dosage: UNK, (INFUSION)
  2. PAMIDRONIC ACID [Suspect]
     Active Substance: PAMIDRONIC ACID
     Indication: Hypercalcaemia
     Dosage: UNK
  3. ALFACALCIDOL [Suspect]
     Active Substance: ALFACALCIDOL
  4. DENOSUMAB [Concomitant]
     Active Substance: DENOSUMAB
     Indication: Hypercalcaemia
     Dosage: UNK
  5. CALCITONIN [Concomitant]
     Active Substance: CALCITONIN
     Indication: Hypercalcaemia
     Dosage: UNK
  6. CINACALCET [Concomitant]
     Active Substance: CINACALCET
     Indication: Hypercalcaemia
     Dosage: UNK

REACTIONS (1)
  - Death [Fatal]
